FAERS Safety Report 4951749-3 (Version None)
Quarter: 2006Q1

REPORT INFORMATION
  Report Type: 
  Country: None (occurrence: None)
  Receive Date: 20060323
  Receipt Date: 20060313
  Transmission Date: 20060701
  Serious: Yes (Hospitalization)
  Sender: FDA-Public Use
  Company Number: DE-GLAXOSMITHKLINE-B0416068A

PATIENT
  Age: 47 Year
  Sex: Male

DRUGS (6)
  1. MELPHALAN [Suspect]
     Indication: DRUG USE FOR UNKNOWN INDICATION
     Route: 065
  2. IDARUBICINE [Concomitant]
  3. DEXAMETHASONE TAB [Concomitant]
  4. IFOSFAMIDE [Concomitant]
  5. EPIRUBICIN [Concomitant]
  6. ETOPOSIDE [Concomitant]

REACTIONS (5)
  - INAPPROPRIATE ANTIDIURETIC HORMONE SECRETION [None]
  - LISTERIA SEPSIS [None]
  - LISTERIOSIS [None]
  - MENINGITIS [None]
  - PYREXIA [None]
